FAERS Safety Report 6946362-2 (Version None)
Quarter: 2010Q3

REPORT INFORMATION
  Report Type: 
  Country: None (occurrence: None)
  Receive Date: 20100824
  Receipt Date: 20100813
  Transmission Date: 20110219
  Serious: Yes (Hospitalization)
  Sender: FDA-Public Use
  Company Number: 2010SP035200

PATIENT
  Age: 50 Year
  Sex: Male

DRUGS (2)
  1. PEG-INTRON [Suspect]
     Indication: HEPATITIS C
     Dosage: ; SC
     Route: 058
     Dates: start: 20100326
  2. REBETOL [Suspect]
     Indication: HEPATITIS C
     Dosage: ; PO
     Route: 048
     Dates: start: 20100326

REACTIONS (8)
  - ANAEMIA MACROCYTIC [None]
  - ANXIETY [None]
  - BLOOD GLUCOSE INCREASED [None]
  - CHEST PAIN [None]
  - DECREASED APPETITE [None]
  - FATIGUE [None]
  - PANIC ATTACK [None]
  - STRESS [None]
